FAERS Safety Report 4754123-8 (Version None)
Quarter: 2005Q3

REPORT INFORMATION
  Report Type: 
  Country: None (occurrence: None)
  Receive Date: 20050825
  Receipt Date: 20050310
  Transmission Date: 20060218
  Serious: Yes (Other)
  Sender: FDA-Public Use
  Company Number: HQWYE180618MAR05

PATIENT
  Age: 8 Year
  Sex: Female
  Weight: 27.69 kg

DRUGS (1)
  1. CHILDREN'S ADVIL [Suspect]
     Indication: BACK PAIN
     Dosage: 2 TEASPOONS AS NEEDED, ORAL
     Route: 048
     Dates: start: 20000101, end: 20050220

REACTIONS (3)
  - CONTUSION [None]
  - SWELLING FACE [None]
  - URTICARIA [None]
